FAERS Safety Report 18501590 (Version 2)
Quarter: 2020Q4

REPORT INFORMATION
  Report Type: Spontaneous
  Country: US (occurrence: US)
  Receive Date: 20201113
  Receipt Date: 20201214
  Transmission Date: 20210114
  Serious: Yes (Life-Threatening, Hospitalization, Other)
  Sender: FDA-Public Use
  Company Number: US-HQ SPECIALTY-US-2020INT000130

PATIENT
  Age: 9 Month
  Sex: Female

DRUGS (8)
  1. DEXMEDETOMIDINE HYDROCHLORIDE. [Suspect]
     Active Substance: DEXMEDETOMIDINE HYDROCHLORIDE
     Dosage: 1 ?G/KG, 1 HR, CONTINUOUS INFUSTION
     Route: 041
     Dates: start: 20200220, end: 20200220
  2. FENTANYL. [Concomitant]
     Active Substance: FENTANYL
     Dosage: 2 ?G/KG, 1 HR
     Route: 041
     Dates: start: 20200219
  3. FENTANYL. [Concomitant]
     Active Substance: FENTANYL
     Dosage: 3 ?G/KG/DOSE (3 UG/KG)
     Route: 042
     Dates: start: 20200220
  4. FENTANYL. [Concomitant]
     Active Substance: FENTANYL
     Indication: SEDATIVE THERAPY
     Dosage: 1 ?G/KG, 1 HR
     Route: 041
     Dates: start: 20200219, end: 20200219
  5. MIDAZOLAM. [Concomitant]
     Active Substance: MIDAZOLAM
     Indication: PRODUCT USED FOR UNKNOWN INDICATION
     Dosage: 0.05 MG/KG/DOSE, UNK
     Route: 065
     Dates: start: 20200220
  6. TACROLIMUS. [Suspect]
     Active Substance: TACROLIMUS
     Indication: PRODUCT USED FOR UNKNOWN INDICATION
     Dosage: DOSE WAS ADJUSTED TO MAIN GOAL TROUGH LEVELS 10-12
     Route: 048
  7. DEXMEDETOMIDINE HYDROCHLORIDE. [Suspect]
     Active Substance: DEXMEDETOMIDINE HYDROCHLORIDE
     Indication: SEDATIVE THERAPY
     Dosage: 0.8 ?G/KG, UNK
     Route: 040
     Dates: start: 20200220
  8. FENTANYL. [Concomitant]
     Active Substance: FENTANYL
     Dosage: 3 ?G/KG, 1 HR
     Route: 041
     Dates: start: 20200219

REACTIONS (7)
  - Drug level increased [Recovered/Resolved]
  - Drug clearance decreased [Recovered/Resolved]
  - Product administered to patient of inappropriate age [Unknown]
  - Drug interaction [Unknown]
  - Sinus bradycardia [Recovered/Resolved]
  - Agitation [Recovered/Resolved]
  - Sinus arrest [Recovered/Resolved]

NARRATIVE: CASE EVENT DATE: 202002
